FAERS Safety Report 10742047 (Version 1)
Quarter: 2015Q1

REPORT INFORMATION
  Report Type: Spontaneous
  Country: US (occurrence: None)
  Receive Date: 20150123
  Receipt Date: 20150123
  Transmission Date: 20150721
  Serious: Yes (Disabling)
  Sender: FDA-Public Use
  Company Number: None

PATIENT
  Age: 53 Year
  Sex: Male
  Weight: 104.33 kg

DRUGS (1)
  1. CITALOPRAM [Suspect]
     Active Substance: CITALOPRAM HYDROBROMIDE
     Indication: DEPRESSION
     Dosage: 1.5 PILLS
     Route: 048
     Dates: start: 20141222, end: 20150122

REACTIONS (7)
  - Withdrawal syndrome [None]
  - Impaired work ability [None]
  - Dizziness [None]
  - Depression [None]
  - Insomnia [None]
  - Drug ineffective [None]
  - Anger [None]

NARRATIVE: CASE EVENT DATE: 20150101
